FAERS Safety Report 19728898 (Version 2)
Quarter: 2021Q3

REPORT INFORMATION
  Report Type: Spontaneous
  Country: IN (occurrence: IN)
  Receive Date: 20210820
  Receipt Date: 20210906
  Transmission Date: 20211014
  Serious: Yes (Other)
  Sender: FDA-Public Use
  Company Number: IN-PFIZER INC-2019382935

PATIENT
  Age: 41 Year
  Sex: Male
  Weight: 94.6 kg

DRUGS (11)
  1. COTARYL [Concomitant]
     Dosage: UNK, 2X/DAY (ON PALMS AND SOLES)
     Route: 061
  2. MEGANEURON OD PLUS [Concomitant]
     Dosage: UNK, 1X/DAY
     Route: 048
  3. COTARYL [Concomitant]
     Dosage: UNK, 3X/DAY
     Route: 061
  4. ULTRACET [Concomitant]
     Active Substance: ACETAMINOPHEN\TRAMADOL HYDROCHLORIDE
     Indication: PAIN
     Dosage: UNK (SOS)
     Route: 048
  5. TAYO [COLECALCIFEROL] [Concomitant]
     Dosage: UNK, ONCE A MONTH
  6. SUTENT [Suspect]
     Active Substance: SUNITINIB MALATE
     Indication: METASTATIC RENAL CELL CARCINOMA
     Dosage: 50 MG, CYCLIC (ONCE A DAY, 2 WEEKS ON AND 1 WEEK OFF
     Route: 048
     Dates: start: 20190831
  7. SUTENT [Suspect]
     Active Substance: SUNITINIB MALATE
     Dosage: 37.5 MG, CYCLIC (ONCE DAILY, 1 WEEK ON AND 1 WEEK OFF )
     Dates: end: 20210821
  8. CLINDAC?A [CLINDAMYCIN PHOSPHATE] [Concomitant]
     Dosage: UNK, 2X/DAY (ON THE BACK)
     Route: 061
  9. SHELCAL HD [Concomitant]
     Active Substance: CALCIUM CARBONATE\CHOLECALCIFEROL
     Dosage: UNK, 1X/DAY
     Route: 048
  10. PAN D [DOMPERIDONE;PANTOPRAZOLE SODIUM SESQUIHYDRATE] [Concomitant]
     Active Substance: DOMPERIDONE\PANTOPRAZOLE SODIUM
     Dosage: UNK, 1X/DAY (EMPTY STOMACH)
     Route: 048
  11. DENOSUMAB [Concomitant]
     Active Substance: DENOSUMAB
     Dosage: UNK, ONCE IN 4 WEEKS

REACTIONS (12)
  - Furuncle [Unknown]
  - Abdominal pain upper [Unknown]
  - Arthralgia [Recovering/Resolving]
  - Hepatic steatosis [Unknown]
  - Pyrexia [Recovered/Resolved]
  - Pleural effusion [Unknown]
  - Off label use [Unknown]
  - Hypertension [Unknown]
  - Palmar-plantar erythrodysaesthesia syndrome [Recovering/Resolving]
  - Product use issue [Unknown]
  - Nephrolithiasis [Unknown]
  - Neoplasm progression [Unknown]

NARRATIVE: CASE EVENT DATE: 20210723
